FAERS Safety Report 24828885 (Version 1)
Quarter: 2025Q1

REPORT INFORMATION
  Report Type: Spontaneous
  Country: US (occurrence: None)
  Receive Date: 20250110
  Receipt Date: 20250110
  Transmission Date: 20250408
  Serious: No
  Sender: ALEXION PHARMACEUTICALS
  Company Number: US-PROCTER+GAMBLE-PH24009891

PATIENT
  Age: 93 Year

DRUGS (4)
  1. PRILOSEC OTC [Suspect]
     Active Substance: OMEPRAZOLE MAGNESIUM
     Dosage: 1 TABLET, MORNING
  2. PRILOSEC OTC [Suspect]
     Active Substance: OMEPRAZOLE MAGNESIUM
     Dosage: 1 TABLET, MORNING
     Route: 048
  3. PRILOSEC OTC [Suspect]
     Active Substance: OMEPRAZOLE MAGNESIUM
     Dosage: 1 TABLET, MORNING
  4. PRILOSEC OTC [Suspect]
     Active Substance: OMEPRAZOLE MAGNESIUM
     Dosage: 1 TABLET, MORNING
     Route: 048

REACTIONS (2)
  - Renal pain [Recovered/Resolved]
  - Pollakiuria [Recovered/Resolved]
